FAERS Safety Report 22302115 (Version 2)
Quarter: 2023Q2

REPORT INFORMATION
  Report Type: Spontaneous
  Country: US (occurrence: US)
  Receive Date: 20230510
  Receipt Date: 20230523
  Transmission Date: 20230722
  Serious: No
  Sender: FDA-Public Use
  Company Number: US-BIOGEN-2022BI01108258

PATIENT
  Age: 33 Year
  Sex: Female

DRUGS (5)
  1. VUMERITY [Suspect]
     Active Substance: DIROXIMEL FUMARATE
     Indication: Multiple sclerosis
     Route: 050
     Dates: start: 20220317, end: 20220319
  2. VUMERITY [Suspect]
     Active Substance: DIROXIMEL FUMARATE
     Route: 050
     Dates: start: 20220320
  3. VUMERITY [Suspect]
     Active Substance: DIROXIMEL FUMARATE
     Route: 050
     Dates: start: 20230519
  4. PROGESTERONE [Concomitant]
     Active Substance: PROGESTERONE
     Route: 050
  5. PROGESTERONE [Concomitant]
     Active Substance: PROGESTERONE
     Dosage: 30MG PER DAY.
     Route: 050

REACTIONS (7)
  - Accidental overdose [Recovered/Resolved]
  - Product dose omission in error [Unknown]
  - Prescribed underdose [Unknown]
  - Multiple sclerosis [Not Recovered/Not Resolved]
  - Urinary tract infection [Not Recovered/Not Resolved]
  - Memory impairment [Not Recovered/Not Resolved]
  - Attention deficit hyperactivity disorder [Unknown]

NARRATIVE: CASE EVENT DATE: 20220301
